FAERS Safety Report 6707776-9 (Version None)
Quarter: 2010Q2

REPORT INFORMATION
  Report Type: 
  Country: None (occurrence: None)
  Receive Date: 20100503
  Receipt Date: 20090602
  Transmission Date: 20101027
  Serious: No
  Sender: FDA-Public Use
  Company Number: US-ASTRAZENECA-2009UW14079

PATIENT
  Sex: Male
  Weight: 70.3 kg

DRUGS (4)
  1. NEXIUM [Suspect]
     Route: 048
     Dates: start: 20090519
  2. DICYCLOMINE [Concomitant]
  3. LIDODERM [Concomitant]
  4. SUPPLEMENTS [Concomitant]

REACTIONS (1)
  - DRUG SCREEN POSITIVE [None]
